FAERS Safety Report 8071284-6 (Version None)
Quarter: 2012Q1

REPORT INFORMATION
  Report Type: 
  Country: None (occurrence: None)
  Receive Date: 20120125
  Receipt Date: 20120124
  Transmission Date: 20120608
  Serious: Yes (Death, Other)
  Sender: FDA-Public Use
  Company Number: RO-BRISTOL-MYERS SQUIBB COMPANY-16364523

PATIENT
  Age: 71 Year
  Sex: Male

DRUGS (1)
  1. YERVOY [Suspect]
     Indication: MALIGNANT MELANOMA
     Dosage: STRENGTH: 3MG/KG
     Route: 042
     Dates: start: 20111209, end: 20111209

REACTIONS (3)
  - GENERAL PHYSICAL HEALTH DETERIORATION [None]
  - DEATH [None]
  - COMA [None]
